FAERS Safety Report 20633941 (Version 3)
Quarter: 2022Q4

REPORT INFORMATION
  Report Type: Report from Study
  Country: US (occurrence: US)
  Receive Date: 20220324
  Receipt Date: 20221014
  Transmission Date: 20230112
  Serious: Yes (Hospitalization, Other)
  Sender: FDA-Public Use
  Company Number: US-BRISTOL-MYERS SQUIBB COMPANY-USA-20220304452

PATIENT
  Age: 60 Year
  Sex: Male
  Weight: 100.7 kg

DRUGS (7)
  1. REVLIMID [Suspect]
     Active Substance: LENALIDOMIDE
     Indication: Plasma cell myeloma
     Dosage: 25 MILLIGRAM (TAKE ONE CAPSULE, DAILY FOR 14 DAYS AND THEN 7 DAYS OFF)??FOR A3688A, BATCH NUMBER IS
     Route: 048
     Dates: start: 20220222, end: 202206
  2. VELCADE [Concomitant]
     Active Substance: BORTEZOMIB
     Indication: Product used for unknown indication
     Dosage: FREQUENCY TEXT: NOT PROVIDED
     Route: 065
  3. ACYCLOVIR [Concomitant]
     Active Substance: ACYCLOVIR
     Indication: Product used for unknown indication
     Dosage: FREQUENCY TEXT: NOT PROVIDED
     Route: 065
  4. CALCIUM ACETATE [Concomitant]
     Active Substance: CALCIUM ACETATE
     Indication: Product used for unknown indication
     Dosage: FREQUENCY TEXT: NOT PROVIDED
     Route: 065
  5. VITAMINS [Concomitant]
     Active Substance: VITAMINS
     Indication: Product used for unknown indication
     Dosage: FREQUENCY TEXT: NOT PROVIDED
     Route: 065
  6. ONDANSETRON [Concomitant]
     Active Substance: ONDANSETRON
     Indication: Product used for unknown indication
     Dosage: FREQUENCY TEXT: NOT PROVIDED
     Route: 065
  7. VITAMIN D [Concomitant]
     Active Substance: VITAMIN D NOS
     Indication: Product used for unknown indication
     Dosage: FREQUENCY TEXT: NOT PROVIDED
     Route: 065

REACTIONS (11)
  - Hypoaesthesia [Unknown]
  - Loss of consciousness [Unknown]
  - Seizure [Unknown]
  - Back pain [Unknown]
  - Haemoglobin increased [Unknown]
  - White blood cell count decreased [Unknown]
  - Trigeminal neuralgia [Unknown]
  - Drug hypersensitivity [Unknown]
  - Dizziness [Unknown]
  - Off label use [Unknown]
  - Oral herpes [Unknown]

NARRATIVE: CASE EVENT DATE: 20220101
